FAERS Safety Report 14682834 (Version 2)
Quarter: 2018Q2

REPORT INFORMATION
  Report Type: Spontaneous
  Country: US (occurrence: US)
  Receive Date: 20180327
  Receipt Date: 20180428
  Transmission Date: 20180711
  Serious: No
  Sender: FDA-Public Use
  Company Number: US-B.I. PHARMACEUTICALS,INC./RIDGEFIELD-2018-BI-016016

PATIENT
  Age: 78 Year
  Sex: Female

DRUGS (5)
  1. VITAMIN D3 [Concomitant]
     Active Substance: CHOLECALCIFEROL
     Indication: PRODUCT USED FOR UNKNOWN INDICATION
     Dosage: 1 TABLET 1 TIME DAILY;  FORM STRENGTH: 2000 IU; FORMULATION: TABLET
     Route: 048
  2. GILOTRIF [Suspect]
     Active Substance: AFATINIB
     Route: 048
     Dates: end: 201804
  3. LOSARTAN/ HYDROCHLOROTHAZIDE [Concomitant]
     Indication: HYPERTENSION
     Dosage: FORM STRENGTH: 100 MG/ 25 MG; FORMULATION: TABLET
     Route: 048
  4. SIMVASTATIN. [Concomitant]
     Active Substance: SIMVASTATIN
     Indication: PRODUCT USED FOR UNKNOWN INDICATION
     Dosage: FORM STRENGTH: 40 MG; FORMULATION: TABLET
     Route: 048
  5. GILOTRIF [Suspect]
     Active Substance: AFATINIB
     Indication: LUNG NEOPLASM MALIGNANT
     Dosage: FORM STRENGTH: 30 MG;  ADMINISTRATION CORRECT? YES ?ACTION(S) TAKEN WITH PRODUCT: DOSE NOT CHANGED
     Route: 048
     Dates: start: 201712

REACTIONS (6)
  - Dry eye [Not Recovered/Not Resolved]
  - Erythema of eyelid [Not Recovered/Not Resolved]
  - Diarrhoea [Not Recovered/Not Resolved]
  - Entropion [Not Recovered/Not Resolved]
  - Lacrimation increased [Not Recovered/Not Resolved]
  - Eye pruritus [Recovered/Resolved]

NARRATIVE: CASE EVENT DATE: 201712
